FAERS Safety Report 11137478 (Version 2)
Quarter: 2015Q2

REPORT INFORMATION
  Report Type: Other
  Country: FI (occurrence: FI)
  Receive Date: 20150526
  Receipt Date: 20150604
  Transmission Date: 20150821
  Serious: Yes (Other)
  Sender: FDA-Public Use
  Company Number: FI-TAKEDA-2015TUS006888

PATIENT
  Age: 64 Year
  Sex: Male

DRUGS (10)
  1. PHYSIOTENS [Concomitant]
     Active Substance: MOXONIDINE
     Indication: BLOOD PRESSURE
     Dosage: 0.4 MG, (0.4 MG,1 IN 1 D)
  2. PANACOD [Concomitant]
     Active Substance: ACETAMINOPHEN\CODEINE PHOSPHATE
     Dosage: UNK
  3. PARACETAMOL [Concomitant]
     Active Substance: ACETAMINOPHEN
     Dosage: UNK
  4. FURESIS [Concomitant]
     Active Substance: FUROSEMIDE
     Indication: HYPERTENSION
     Dosage: 40 MG, (40 MG,1 IN 1 D)
     Dates: start: 20141017
  5. AMLODIPIN                          /00972401/ [Concomitant]
     Active Substance: AMLODIPINE BESYLATE
     Indication: BLOOD PRESSURE
     Dosage: 10 MG, (10 MG,1 IN 1 D)
  6. ADENURIC [Suspect]
     Active Substance: FEBUXOSTAT
     Indication: GOUT
     Dosage: 80 MG (80 MG,1 IN 1 D)
     Route: 048
     Dates: start: 20140709, end: 20150504
  7. BURANA [Concomitant]
     Active Substance: IBUPROFEN
     Dosage: UNK
  8. COZAAR [Concomitant]
     Active Substance: LOSARTAN POTASSIUM
     Indication: BLOOD PRESSURE
     Dosage: 100 MG, 100 MG,1 IN 1 D
     Dates: start: 20140428
  9. AZAMUN [Concomitant]
     Active Substance: AZATHIOPRINE
     Indication: ARTHRITIS
     Dosage: 100 MG, (50 MG,2 IN 1 D)
     Route: 065
     Dates: start: 20131024, end: 20150504
  10. FURESIS [Concomitant]
     Active Substance: FUROSEMIDE
     Indication: BLOOD PRESSURE

REACTIONS (10)
  - Loss of consciousness [Recovered/Resolved]
  - Anaemia [Recovering/Resolving]
  - Mean cell volume increased [Unknown]
  - Fall [Recovered/Resolved]
  - Local swelling [Unknown]
  - Thrombocytopenia [Recovering/Resolving]
  - Blood creatinine increased [Unknown]
  - Arrhythmia [Recovered/Resolved]
  - Dizziness [Recovered/Resolved]
  - Tenderness [Unknown]

NARRATIVE: CASE EVENT DATE: 2015
